FAERS Safety Report 4506541-0 (Version None)
Quarter: 2004Q4

REPORT INFORMATION
  Report Type: 
  Country: None (occurrence: None)
  Receive Date: 20041122
  Receipt Date: 20041110
  Transmission Date: 20050328
  Serious: Yes (Hospitalization)
  Sender: FDA-Public Use
  Company Number: JP-BRISTOL-MYERS SQUIBB COMPANY-12768867

PATIENT
  Age: 50 Year
  Sex: Male

DRUGS (5)
  1. EFAVIRENZ CAPS [Suspect]
     Indication: HIV INFECTION
     Route: 048
     Dates: start: 20021217
  2. VIDEX EC [Suspect]
     Indication: HIV INFECTION
     Route: 048
     Dates: start: 20010316
  3. ZIAGEN [Suspect]
     Indication: HIV INFECTION
     Route: 048
     Dates: start: 20021217
  4. GLYBURIDE [Concomitant]
     Dosage: UNKNOWN TO 21-APR-2003, THEN DOSAGE INCREASED 22-APR-2004 TO 03-JUN-2003
     Dates: end: 20030603
  5. DAONIL [Concomitant]

REACTIONS (2)
  - DIABETES MELLITUS [None]
  - INSOMNIA [None]
